FAERS Safety Report 24303756 (Version 3)
Quarter: 2024Q4

REPORT INFORMATION
  Report Type: Report from Study
  Country: TR (occurrence: TR)
  Receive Date: 20240910
  Receipt Date: 20241115
  Transmission Date: 20250115
  Serious: Yes (Hospitalization)
  Sender: REGENERON
  Company Number: TR-REGENERON PHARMACEUTICALS, INC.-2024-016583

PATIENT
  Age: 6 Year
  Sex: Male

DRUGS (14)
  1. POZELIMAB [Suspect]
     Active Substance: POZELIMAB
     Indication: CHAPLE syndrome
     Dosage: 10 MG/KG (7 DAYS AFTER THE   LOADING DOSE)
     Route: 058
     Dates: start: 20240105, end: 20240105
  2. POZELIMAB [Suspect]
     Active Substance: POZELIMAB
     Dosage: 10 MG/KG, TWICE A WEEK
     Route: 058
     Dates: start: 20240116, end: 20240620
  3. POZELIMAB [Suspect]
     Active Substance: POZELIMAB
     Dosage: 10 MG/KG (6 DAYS AFTER THE   LOADING DOSE)
     Route: 058
     Dates: start: 20240111, end: 20240111
  4. POZELIMAB [Suspect]
     Active Substance: POZELIMAB
     Dosage: 570 MG, SINGLE LOADING DOSE
     Route: 042
     Dates: start: 20231229, end: 20231229
  5. POZELIMAB [Suspect]
     Active Substance: POZELIMAB
     Dosage: UNK
     Route: 058
     Dates: start: 20240808
  6. ENOXAPARIN SODIUM [Concomitant]
     Active Substance: ENOXAPARIN SODIUM
     Indication: Thrombosis
     Dosage: 2000 [IU] Q12HR
     Route: 058
     Dates: start: 20231219
  7. PIPERACILLIN SODIUM\TAZOBACTAM SODIUM [Concomitant]
     Active Substance: PIPERACILLIN SODIUM\TAZOBACTAM SODIUM
     Indication: Pneumonia
     Dosage: 2000 MG, Q6HR
     Route: 042
     Dates: start: 20231228, end: 20240105
  8. PIPERACILLIN SODIUM\TAZOBACTAM SODIUM [Concomitant]
     Active Substance: PIPERACILLIN SODIUM\TAZOBACTAM SODIUM
     Dosage: 2000 MG, Q6HR
     Route: 042
     Dates: start: 20240118, end: 20240126
  9. VANCOMYCIN [Concomitant]
     Active Substance: VANCOMYCIN
     Indication: Pneumonia
     Dosage: 300 MG, Q6H
     Route: 042
     Dates: start: 20240105, end: 20240114
  10. MEROPENEM [Concomitant]
     Active Substance: MEROPENEM
     Indication: Pneumonia
     Dosage: 800 MG, Q3HR
     Route: 042
     Dates: start: 20240105, end: 20240114
  11. PENICILLIN V [Concomitant]
     Active Substance: PENICILLIN V
     Indication: Prophylaxis
     Dosage: 250 MG, Q12HR
     Route: 048
     Dates: start: 20240114
  12. PENICILLIN V [Concomitant]
     Active Substance: PENICILLIN V
     Indication: Meningitis
  13. ALBUMIN HUMAN [Concomitant]
     Active Substance: ALBUMIN HUMAN
     Indication: Blood albumin decreased
     Dosage: 2 G/KG
     Route: 065
     Dates: start: 20231219
  14. TEICOPLANIN [Concomitant]
     Active Substance: TEICOPLANIN
     Indication: Bacterial translocation
     Dosage: 180 MG, Q24 HR
     Route: 042
     Dates: start: 20240121, end: 20240201

REACTIONS (2)
  - Drug effect less than expected [Recovered/Resolved]
  - Hepatitis [Not Recovered/Not Resolved]

NARRATIVE: CASE EVENT DATE: 20240115
